FAERS Safety Report 20879946 (Version 2)
Quarter: 2022Q2

REPORT INFORMATION
  Report Type: Spontaneous
  Country: US (occurrence: US)
  Receive Date: 20220526
  Receipt Date: 20220530
  Transmission Date: 20220721
  Serious: No
  Sender: FDA-Public Use
  Company Number: US-NOVARTISTESTPH-NVSC2022US121328

PATIENT
  Sex: Female

DRUGS (1)
  1. XIIDRA [Suspect]
     Active Substance: LIFITEGRAST
     Indication: Dry eye
     Dosage: UNK
     Route: 065
     Dates: start: 20220524

REACTIONS (6)
  - Paranasal sinus discomfort [Unknown]
  - Feeling hot [Unknown]
  - Photophobia [Unknown]
  - Eye pain [Unknown]
  - Headache [Unknown]
  - Dyspnoea [Unknown]
